FAERS Safety Report 6279954-7 (Version None)
Quarter: 2009Q3

REPORT INFORMATION
  Report Type: 
  Country: None (occurrence: None)
  Receive Date: 20090723
  Receipt Date: 20090402
  Transmission Date: 20100115
  Serious: No
  Sender: FDA-Public Use
  Company Number: US-AMGEN-KDL341476

PATIENT
  Age: 89 Year
  Sex: Male
  Weight: 59 kg

DRUGS (3)
  1. PROCRIT [Suspect]
     Indication: RENAL FAILURE CHRONIC
  2. UNSPECIFIED THYROID MEDICATION [Concomitant]
  3. PRAZSOIN HCL [Concomitant]

REACTIONS (4)
  - ASTHENIA [None]
  - FATIGUE [None]
  - MOUTH BREATHING [None]
  - RESPIRATORY DISORDER [None]
